FAERS Safety Report 9472890 (Version 1)
Quarter: 2013Q3

REPORT INFORMATION
  Report Type: Report from Study
  Country: US (occurrence: US)
  Receive Date: 20130823
  Receipt Date: 20130823
  Transmission Date: 20140515
  Serious: Yes (Hospitalization)
  Sender: FDA-Public Use
  Company Number: US-ABBOTT-13P-163-1133953-00

PATIENT
  Age: 36 Year
  Sex: Male

DRUGS (9)
  1. HUMIRA [Suspect]
     Indication: CROHN^S DISEASE
     Dates: start: 20130628
  2. HUMIRA [Suspect]
     Dates: start: 20130715
  3. HUMIRA [Suspect]
  4. LEXAPRO [Concomitant]
     Indication: ANXIETY
  5. LEXAPRO [Concomitant]
     Indication: CARDIAC DISORDER
  6. AZATHIOPRINE [Concomitant]
     Indication: PRODUCT USED FOR UNKNOWN INDICATION
  7. PREDNISONE [Concomitant]
     Indication: PRODUCT USED FOR UNKNOWN INDICATION
     Dosage: TO BE TAPERED
  8. PANTOPRAZOLE [Concomitant]
     Indication: GASTROOESOPHAGEAL REFLUX DISEASE
  9. LOPID [Concomitant]
     Indication: BLOOD CHOLESTEROL

REACTIONS (3)
  - Dehydration [Not Recovered/Not Resolved]
  - Infection [Not Recovered/Not Resolved]
  - Weight decreased [Not Recovered/Not Resolved]
